FAERS Safety Report 4982637-4 (Version None)
Quarter: 2006Q2

REPORT INFORMATION
  Report Type: 
  Country: None (occurrence: None)
  Receive Date: 20060419
  Receipt Date: 20060406
  Transmission Date: 20061013
  Serious: Yes (Death, Other)
  Sender: FDA-Public Use
  Company Number: 2006036122

PATIENT
  Age: 49 Year
  Sex: Female
  Weight: 107.0489 kg

DRUGS (16)
  1. LYRICA [Suspect]
     Indication: PAIN
     Dosage: 100 MG (50 MG, 1 IN D), ORAL
     Route: 048
     Dates: start: 20051031
  2. CELEBREX [Suspect]
     Indication: DIABETIC NEUROPATHY
     Dosage: ONE TO TWO TIMES DAILY (200 MG), UNKNOWN
     Route: 065
     Dates: start: 20050101
  3. GABAPENTIN [Suspect]
     Indication: ILL-DEFINED DISORDER
     Dosage: 2400 MG (800 MG, 3 IN 1 D), UNKNOWN
     Route: 065
     Dates: start: 19980101
  4. ACTOS [Suspect]
     Indication: ILL-DEFINED DISORDER
     Dosage: UNK (30 MG, UNKNOWN), UNKNOWN
     Route: 065
     Dates: start: 20040101, end: 20050301
  5. LIPITOR [Concomitant]
  6. SKELAXIN [Concomitant]
  7. LISINOPRIL [Concomitant]
  8. LEVOTHYROXINE SODIUM [Concomitant]
  9. HUMALOG [Concomitant]
  10. LANTUS [Concomitant]
  11. GLUCOPHAGE XR (METFORMIN HYDROCHLORIDE) [Concomitant]
  12. DOXEPIN HCL [Concomitant]
  13. ALBUTEROL [Concomitant]
  14. AZMACORT [Concomitant]
  15. PANCREASE (PANCRELIPASE) [Concomitant]
  16. NEXIUM [Concomitant]

REACTIONS (9)
  - ALANINE AMINOTRANSFERASE INCREASED [None]
  - BLOOD GLUCOSE INCREASED [None]
  - BLOOD THYROID STIMULATING HORMONE INCREASED [None]
  - DILATATION VENTRICULAR [None]
  - FEELING COLD [None]
  - GASTROOESOPHAGEAL REFLUX DISEASE [None]
  - HALLUCINATION [None]
  - PANCREATIC INSUFFICIENCY [None]
  - SWELLING [None]
